FAERS Safety Report 12418978 (Version 3)
Quarter: 2016Q4

REPORT INFORMATION
  Report Type: Report from Study
  Country: TN (occurrence: TN)
  Receive Date: 20160531
  Receipt Date: 20161010
  Transmission Date: 20170207
  Serious: Yes (Other)
  Sender: FDA-Public Use
  Company Number: PHHY2016TN068304

PATIENT
  Age: 62 Year
  Sex: Male

DRUGS (1)
  1. TASIGNA [Suspect]
     Active Substance: NILOTINIB
     Indication: CHRONIC MYELOID LEUKAEMIA
     Dosage: 200 MG, BID (2 CAPSULESX2/DAY)
     Route: 048
     Dates: start: 20160510, end: 20160926

REACTIONS (6)
  - Platelet count decreased [Unknown]
  - Pyrexia [Unknown]
  - Rash [Recovered/Resolved]
  - Malignant neoplasm progression [Unknown]
  - Blood creatinine abnormal [Unknown]
  - Chronic myeloid leukaemia [Unknown]

NARRATIVE: CASE EVENT DATE: 20160513
